FAERS Safety Report 6058129-0 (Version None)
Quarter: 2009Q1

REPORT INFORMATION
  Report Type: 
  Country: None (occurrence: None)
  Receive Date: 20090127
  Receipt Date: 20090117
  Transmission Date: 20090719
  Serious: Yes (Other)
  Sender: FDA-Public Use
  Company Number: 2009SP001209

PATIENT
  Age: 58 Year
  Sex: Male

DRUGS (9)
  1. NOXAFIL (POSOCONAZOLE) (POSOCONAZOLE) [Suspect]
     Indication: FUNGAL INFECTION
     Dosage: PO
     Route: 048
  2. NOXAFIL (POSOCONAZOLE) (POSOCONAZOLE) [Suspect]
     Indication: LUNG INFECTION
     Dosage: PO
     Route: 048
  3. VINCRISTINE [Suspect]
     Indication: DISEASE PROGRESSION
     Dosage: 2 MG
  4. BLEOMYCIN SULFATE [Concomitant]
  5. VORICONAZOLE [Concomitant]
  6. PREDNISOLONE [Concomitant]
  7. DOXORUBICIN HCL [Concomitant]
  8. ETOPOSIDE [Concomitant]
  9. CYCLOPHOSPHAMIDE [Concomitant]

REACTIONS (1)
  - INTESTINAL OBSTRUCTION [None]
